FAERS Safety Report 19670356 (Version 1)
Quarter: 2021Q3

REPORT INFORMATION
  Report Type: Spontaneous
  Country: US (occurrence: US)
  Receive Date: 20210806
  Receipt Date: 20210806
  Transmission Date: 20211014
  Serious: Yes (Other)
  Sender: FDA-Public Use
  Company Number: US-SAOL THERAPEUTICS-2021SAO00019

PATIENT
  Age: 36 Year
  Sex: Female

DRUGS (4)
  1. LIORESAL [Suspect]
     Active Substance: BACLOFEN
     Indication: MUSCLE SPASTICITY
     Dosage: UNK
     Route: 037
  2. LIORESAL [Suspect]
     Active Substance: BACLOFEN
     Dosage: UNK
     Route: 037
     Dates: end: 20080408
  3. LIORESAL [Suspect]
     Active Substance: BACLOFEN
     Dosage: UNK
     Route: 037
     Dates: start: 20080408, end: 20080414
  4. LIORESAL [Suspect]
     Active Substance: BACLOFEN
     Dosage: 465 ?G, \DAY
     Route: 037
     Dates: start: 20080414

REACTIONS (8)
  - Somnolence [Recovered/Resolved]
  - Underdose [Recovered/Resolved]
  - Therapy non-responder [Recovered/Resolved]
  - Device dislocation [Recovered/Resolved]
  - Respiratory depression [Recovered/Resolved]
  - Overdose [Recovered/Resolved]
  - Coma [Recovered/Resolved]
  - Device programming error [Recovered/Resolved]

NARRATIVE: CASE EVENT DATE: 200804
